FAERS Safety Report 6211042-8 (Version None)
Quarter: 2009Q2

REPORT INFORMATION
  Report Type: 
  Country: None (occurrence: None)
  Receive Date: 20090528
  Receipt Date: 20090521
  Transmission Date: 20091009
  Serious: Yes (Life-Threatening, Other)
  Sender: FDA-Public Use
  Company Number: 57692 -1

PATIENT
  Sex: Female
  Weight: 52.1637 kg

DRUGS (1)
  1. PROPOFOL INJECTABLE EMULSION 10MG/ML(20ML) [Suspect]
     Indication: ANAESTHESIA
     Dates: start: 20050714, end: 20061222

REACTIONS (2)
  - HEPATITIS C [None]
  - PRODUCT CONTAMINATION [None]
